FAERS Safety Report 7286244-2 (Version None)
Quarter: 2011Q1

REPORT INFORMATION
  Report Type: 
  Country: None (occurrence: None)
  Receive Date: 20110210
  Receipt Date: 20110202
  Transmission Date: 20110831
  Serious: Yes (Other)
  Sender: FDA-Public Use
  Company Number: PHHY2010US75553

PATIENT
  Sex: Male

DRUGS (4)
  1. OXCARBAZEPINE [Concomitant]
     Dosage: UNK
  2. EXTAVIA [Suspect]
     Indication: MULTIPLE SCLEROSIS
     Dosage: 0.25 MG, QOD
     Route: 058
     Dates: start: 20100701
  3. BACLOFEN [Concomitant]
     Dosage: UNK
  4. ATENOLOL [Concomitant]
     Dosage: UNK

REACTIONS (5)
  - OROPHARYNGEAL PAIN [None]
  - ARTHRALGIA [None]
  - FALL [None]
  - MYALGIA [None]
  - JOINT STIFFNESS [None]
